FAERS Safety Report 12429899 (Version 1)
Quarter: 2016Q2

REPORT INFORMATION
  Report Type: Spontaneous
  Country: US (occurrence: US)
  Receive Date: 20160602
  Receipt Date: 20160602
  Transmission Date: 20160815
  Serious: No
  Sender: FDA-Public Use
  Company Number: US-KADMON PHARMACEUTICALS, LLC-KAD201504-000859

PATIENT
  Age: 63 Year
  Sex: Male

DRUGS (2)
  1. RIBAVIRIN. [Suspect]
     Active Substance: RIBAVIRIN
     Indication: HEPATITIS C
     Route: 048
     Dates: start: 20150322, end: 20150401
  2. VIEKIRA PAK [Suspect]
     Active Substance: DASABUVIR\OMBITASVIR\PARITAPREVIR\RITONAVIR
     Indication: HEPATITIS C
     Dosage: TABLET
     Route: 048
     Dates: start: 20150322, end: 20150401

REACTIONS (7)
  - Haemoglobin decreased [Unknown]
  - Haematocrit decreased [Unknown]
  - Blood bilirubin increased [Unknown]
  - Arthralgia [Unknown]
  - Platelet count decreased [Unknown]
  - Red blood cell sedimentation rate increased [Unknown]
  - Myalgia [Unknown]

NARRATIVE: CASE EVENT DATE: 201503
